FAERS Safety Report 10629114 (Version 1)
Quarter: 2014Q4

REPORT INFORMATION
  Report Type: Spontaneous
  Country: FR (occurrence: FR)
  Receive Date: 20141205
  Receipt Date: 20141205
  Transmission Date: 20150529
  Serious: Yes (Other)
  Sender: FDA-Public Use
  Company Number: FR-ROCHE-1501139

PATIENT
  Age: 40 Year
  Sex: Female

DRUGS (8)
  1. LOXAPAC [Suspect]
     Active Substance: LOXAPINE SUCCINATE
     Dosage: 50 DROPS PER OS IN THE EVENING
     Route: 065
     Dates: end: 20141112
  2. TRANXENE T-TAB [Concomitant]
     Active Substance: CLORAZEPATE DIPOTASSIUM
  3. LOXAPAC [Suspect]
     Active Substance: LOXAPINE SUCCINATE
     Dosage: 50 DROPS PER OS IN THE MORNING AND 50 MG BY IM ROUTE AT LUNCHTIMNDE A 50 DROPS PER OS IN THE EVENING
     Route: 030
     Dates: start: 20141110
  4. DIFFU K [Concomitant]
     Active Substance: POTASSIUM CHLORIDE
  5. LOXAPAC [Suspect]
     Active Substance: LOXAPINE SUCCINATE
     Dosage: 50 DROPS PER OS IN THE MORNING AND 50 MG BY IM ROUTE IN THE EVENING
     Route: 030
     Dates: start: 20141109
  6. VALIUM [Suspect]
     Active Substance: DIAZEPAM
     Indication: AGITATION
     Route: 048
     Dates: start: 20141110, end: 20141112
  7. LOXAPAC [Suspect]
     Active Substance: LOXAPINE SUCCINATE
     Indication: AGITATION
     Route: 030
     Dates: start: 20141108, end: 20141112
  8. LOXAPAC [Suspect]
     Active Substance: LOXAPINE SUCCINATE
     Dosage: 50 DROPS PER OS IN THE MORNING AND AT LUNCHTIME, 50 MG BY IM ROUTE IN THE EVENING
     Route: 030
     Dates: start: 20141111

REACTIONS (2)
  - Rhabdomyolysis [Recovering/Resolving]
  - Hepatitis [Recovering/Resolving]

NARRATIVE: CASE EVENT DATE: 20141112
